FAERS Safety Report 13117425 (Version 4)
Quarter: 2017Q4

REPORT INFORMATION
  Report Type: Spontaneous
  Country: JP (occurrence: JP)
  Receive Date: 20170116
  Receipt Date: 20171005
  Transmission Date: 20180320
  Serious: Yes (Death, Other)
  Sender: FDA-Public Use
  Company Number: JP-ASTRAZENECA-2016SF34794

PATIENT
  Age: 26257 Day
  Sex: Female
  Weight: 34 kg

DRUGS (19)
  1. METHADONE HYDROCHLORIDE. [Interacting]
     Active Substance: METHADONE HYDROCHLORIDE
     Indication: BENIGN BONE NEOPLASM
     Route: 048
     Dates: end: 20161031
  2. ZYPREXA [Concomitant]
     Active Substance: OLANZAPINE
     Route: 065
  3. METHADONE HYDROCHLORIDE. [Interacting]
     Active Substance: METHADONE HYDROCHLORIDE
     Indication: PANCREATIC CARCINOMA
     Route: 048
     Dates: end: 20161031
  4. SEROQUEL [Interacting]
     Active Substance: QUETIAPINE FUMARATE
     Indication: PANCREATIC CARCINOMA
     Route: 048
     Dates: start: 20160912, end: 20160920
  5. CELECOX [Concomitant]
     Active Substance: CELECOXIB
     Dosage: 100.0MG UNKNOWN
     Route: 048
     Dates: end: 20161012
  6. OXINORM (ORGOTEIN) [Concomitant]
     Active Substance: ORGOTEIN
     Dosage: 10.0MG UNKNOWN
     Route: 048
     Dates: end: 20161011
  7. SEROQUEL [Suspect]
     Active Substance: QUETIAPINE FUMARATE
     Indication: NAUSEA
     Route: 048
     Dates: start: 20160912, end: 20160920
  8. METHADONE HYDROCHLORIDE. [Interacting]
     Active Substance: METHADONE HYDROCHLORIDE
     Indication: PAIN
     Route: 048
     Dates: end: 20161031
  9. METHADONE HYDROCHLORIDE. [Interacting]
     Active Substance: METHADONE HYDROCHLORIDE
     Indication: PAIN
     Route: 048
     Dates: end: 20161011
  10. METHADONE HYDROCHLORIDE. [Interacting]
     Active Substance: METHADONE HYDROCHLORIDE
     Indication: PANCREATIC CARCINOMA
     Route: 048
     Dates: start: 20161101, end: 20161213
  11. METHADONE HYDROCHLORIDE. [Interacting]
     Active Substance: METHADONE HYDROCHLORIDE
     Indication: BENIGN BONE NEOPLASM
     Route: 048
     Dates: end: 20161011
  12. METHADONE HYDROCHLORIDE. [Interacting]
     Active Substance: METHADONE HYDROCHLORIDE
     Indication: PAIN
     Route: 048
     Dates: start: 20161101, end: 20161213
  13. ELIQUIS [Concomitant]
     Active Substance: APIXABAN
     Dosage: 2.5MG UNKNOWN
     Route: 048
     Dates: start: 20160924, end: 20161012
  14. METHADONE HYDROCHLORIDE. [Interacting]
     Active Substance: METHADONE HYDROCHLORIDE
     Indication: PANCREATIC CARCINOMA
     Route: 048
     Dates: end: 20161011
  15. LYRICA [Concomitant]
     Active Substance: PREGABALIN
     Dosage: 75.0MG UNKNOWN
     Route: 048
     Dates: end: 20161012
  16. POLARAMINE [Concomitant]
     Active Substance: DEXCHLORPHENIRAMINE MALEATE
     Dosage: 2.0MG UNKNOWN
     Route: 048
     Dates: start: 20160923, end: 20161012
  17. SEROQUEL [Interacting]
     Active Substance: QUETIAPINE FUMARATE
     Indication: NAUSEA
     Route: 048
     Dates: start: 20160921, end: 20161012
  18. SEROQUEL [Interacting]
     Active Substance: QUETIAPINE FUMARATE
     Indication: PANCREATIC CARCINOMA
     Route: 048
     Dates: start: 20160921, end: 20161012
  19. METHADONE HYDROCHLORIDE. [Interacting]
     Active Substance: METHADONE HYDROCHLORIDE
     Indication: BENIGN BONE NEOPLASM
     Route: 048
     Dates: start: 20161101, end: 20161213

REACTIONS (6)
  - Drug interaction [Recovered/Resolved]
  - Off label use [Unknown]
  - Hypoglycaemia [Recovered/Resolved]
  - Transient ischaemic attack [Unknown]
  - Hypercoagulation [Unknown]
  - Hemiplegia [Unknown]

NARRATIVE: CASE EVENT DATE: 20161011
